FAERS Safety Report 6904227-6 (Version None)
Quarter: 2010Q3

REPORT INFORMATION
  Report Type: 
  Country: None (occurrence: None)
  Receive Date: 20100804
  Receipt Date: 20090408
  Transmission Date: 20110219
  Serious: No
  Sender: FDA-Public Use
  Company Number: US-PFIZER INC-2009196313

PATIENT
  Sex: Male
  Weight: 99.8 kg

DRUGS (2)
  1. LYRICA [Suspect]
     Indication: BACK PAIN
     Dosage: 100 MG, 2X/DAY
     Route: 048
     Dates: start: 20090201
  2. MORPHINE [Concomitant]
     Dosage: UNK

REACTIONS (7)
  - DRUG DEPENDENCE [None]
  - FEELING HOT [None]
  - INSOMNIA [None]
  - OEDEMA PERIPHERAL [None]
  - PAIN IN EXTREMITY [None]
  - PRURITUS [None]
  - WEIGHT INCREASED [None]
